FAERS Safety Report 7996809-8 (Version None)
Quarter: 2011Q4

REPORT INFORMATION
  Report Type: 
  Country: None (occurrence: None)
  Receive Date: 20111221
  Receipt Date: 20111027
  Transmission Date: 20120403
  Serious: Yes (Other)
  Sender: FDA-Public Use
  Company Number: US-NAPPMUNDI-USA-2011-0079834

PATIENT
  Sex: Male

DRUGS (1)
  1. OXYCONTIN [Suspect]
     Indication: ANALGESIC THERAPY
     Dosage: UNK
     Dates: start: 20051201, end: 20110506

REACTIONS (5)
  - HYPERTENSION [None]
  - SUICIDAL IDEATION [None]
  - GASTROINTESTINAL HAEMORRHAGE [None]
  - CONSTIPATION [None]
  - DEPRESSION [None]
